FAERS Safety Report 20345529 (Version 1)
Quarter: 2022Q1

REPORT INFORMATION
  Report Type: Spontaneous
  Country: IN (occurrence: IN)
  Receive Date: 20220118
  Receipt Date: 20220118
  Transmission Date: 20220424
  Serious: Yes (Hospitalization)
  Sender: FDA-Public Use
  Company Number: IN-MYLANLABS-2022M1003120

PATIENT
  Age: 34 Year
  Sex: Male

DRUGS (21)
  1. PHENYTOIN [Suspect]
     Active Substance: PHENYTOIN
     Indication: Faciobrachial dystonic seizure
     Dosage: 300 MILLIGRAM, QD
     Route: 065
  2. PHENYTOIN [Suspect]
     Active Substance: PHENYTOIN
     Indication: Partial seizures with secondary generalisation
  3. PHENYTOIN [Suspect]
     Active Substance: PHENYTOIN
     Indication: Partial seizures
  4. VALPROATE SODIUM [Suspect]
     Active Substance: VALPROATE SODIUM
     Indication: Faciobrachial dystonic seizure
     Dosage: 1 GRAM
     Route: 065
  5. VALPROATE SODIUM [Suspect]
     Active Substance: VALPROATE SODIUM
     Indication: Partial seizures with secondary generalisation
     Dosage: 500 MILLIGRAM, BID
     Route: 065
  6. VALPROATE SODIUM [Suspect]
     Active Substance: VALPROATE SODIUM
     Indication: Partial seizures
  7. LEVETIRACETAM [Suspect]
     Active Substance: LEVETIRACETAM
     Indication: Faciobrachial dystonic seizure
     Dosage: 1500 MILLIGRAM, QD
     Route: 065
  8. LEVETIRACETAM [Suspect]
     Active Substance: LEVETIRACETAM
     Indication: Partial seizures with secondary generalisation
  9. LEVETIRACETAM [Suspect]
     Active Substance: LEVETIRACETAM
     Indication: Partial seizures
  10. CLOBAZAM [Suspect]
     Active Substance: CLOBAZAM
     Indication: Faciobrachial dystonic seizure
     Dosage: 10 MILLIGRAM, BID
     Route: 065
  11. CLOBAZAM [Suspect]
     Active Substance: CLOBAZAM
     Indication: Partial seizures with secondary generalisation
     Dosage: 30 MILLIGRAM, QD
     Route: 065
  12. CLOBAZAM [Suspect]
     Active Substance: CLOBAZAM
     Indication: Partial seizures
  13. LACOSAMIDE [Suspect]
     Active Substance: LACOSAMIDE
     Indication: Faciobrachial dystonic seizure
     Dosage: 200 MILLIGRAM, QD
     Route: 065
  14. LACOSAMIDE [Suspect]
     Active Substance: LACOSAMIDE
     Indication: Partial seizures with secondary generalisation
  15. LACOSAMIDE [Suspect]
     Active Substance: LACOSAMIDE
     Indication: Partial seizures
  16. BASILIXIMAB [Concomitant]
     Active Substance: BASILIXIMAB
     Indication: Immunosuppressant drug therapy
     Dosage: FOR 2 YEARS
     Route: 065
  17. MYCOPHENOLATE MOFETIL [Concomitant]
     Active Substance: MYCOPHENOLATE MOFETIL
     Indication: Immunosuppressant drug therapy
     Dosage: FOR 2 YEARS
     Route: 065
  18. CYCLOSPORINE [Concomitant]
     Active Substance: CYCLOSPORINE
     Indication: Immunosuppressant drug therapy
     Dosage: FOR 2 YEARS
     Route: 065
  19. PREDNISOLONE [Concomitant]
     Active Substance: PREDNISOLONE
     Indication: Immunosuppressant drug therapy
     Dosage: FOR 2 YEARS
     Route: 065
  20. CIPROFLOXACIN [Concomitant]
     Active Substance: CIPROFLOXACIN
     Indication: Gastroenteritis
     Dosage: 500 MILLIGRAM, BID
     Route: 065
  21. CEFOPERAZONE\SULBACTAM [Concomitant]
     Active Substance: CEFOPERAZONE\SULBACTAM
     Indication: Gastroenteritis
     Dosage: 3 GRAM, BID (INJECTABLE)
     Route: 065

REACTIONS (1)
  - Drug ineffective [Unknown]
